FAERS Safety Report 6389154-8 (Version None)
Quarter: 2009Q4

REPORT INFORMATION
  Report Type: 
  Country: None (occurrence: None)
  Receive Date: 20091006
  Receipt Date: 20070604
  Transmission Date: 20100525
  Serious: Yes (Hospitalization, Other)
  Sender: FDA-Public Use
  Company Number: US-ASTRAZENECA-2006UW12328

PATIENT
  Age: 16971 Day
  Sex: Male
  Weight: 106.1 kg

DRUGS (22)
  1. SEROQUEL [Suspect]
     Indication: POST-TRAUMATIC STRESS DISORDER
     Dosage: 50 MG-400 MG
     Route: 048
     Dates: start: 20040120
  2. SEROQUEL [Suspect]
     Indication: AFFECTIVE DISORDER
     Dosage: 50 MG-400 MG
     Route: 048
     Dates: start: 20040120
  3. SEROQUEL [Suspect]
     Indication: INSOMNIA
     Dosage: 50 MG-400 MG
     Route: 048
     Dates: start: 20040120
  4. ZYPREXA [Concomitant]
     Dates: start: 20000101, end: 20040101
  5. AMITRIPTYLINE [Concomitant]
     Route: 048
     Dates: start: 20040101
  6. ASPIRIN [Concomitant]
     Route: 048
     Dates: start: 20040101
  7. ATENOLOL [Concomitant]
     Dosage: 50 MG-100 MG
     Route: 048
     Dates: start: 20031105
  8. CLONAZEPAM [Concomitant]
     Dosage: 1 MG-3.5 MG
     Route: 048
     Dates: start: 20040120
  9. CLOPIDOGREL BISULFATE [Concomitant]
     Route: 048
     Dates: start: 20040121
  10. AMRIX [Concomitant]
     Route: 048
     Dates: start: 20040101
  11. FELODIPINE [Concomitant]
     Indication: HYPERTENSION
     Route: 048
     Dates: start: 20031105
  12. LANSOPRAZOLE [Concomitant]
     Route: 048
     Dates: start: 20040120
  13. MIRTAZAPINE [Concomitant]
     Route: 048
     Dates: start: 20040101
  14. PREDNISONE TAB [Concomitant]
     Dosage: 5 MG-30 MG
     Route: 048
     Dates: start: 20031105
  15. SIMVASTATIN [Concomitant]
     Indication: BLOOD CHOLESTEROL
     Dosage: 40 MG-80 MG
     Route: 048
     Dates: start: 20040101
  16. TOPIRAMATE [Concomitant]
     Route: 048
  17. HYDROCHLOROTHIAZIDE [Concomitant]
     Dates: start: 20040222
  18. NALTREXONE HYDROCHLORIDE [Concomitant]
     Dates: start: 20040222
  19. SERTRALINE HCL [Concomitant]
     Dates: start: 20040222
  20. METFORMIN [Concomitant]
     Indication: DIABETES MELLITUS
     Route: 048
     Dates: start: 20060611
  21. TRAZODONE [Concomitant]
     Indication: INSOMNIA
     Dosage: 100 MG-400 MG
     Route: 048
     Dates: start: 20060610
  22. LAMICTAL [Concomitant]
     Dates: start: 20060610

REACTIONS (10)
  - BLOOD GLUCOSE INCREASED [None]
  - CARDIAC DISORDER [None]
  - CORONARY ARTERY BYPASS [None]
  - DIABETES MELLITUS [None]
  - DIABETIC COMA [None]
  - DIABETIC KETOACIDOSIS [None]
  - NEUROPATHY PERIPHERAL [None]
  - ORGANIC ERECTILE DYSFUNCTION [None]
  - PANCREATITIS [None]
  - TYPE 2 DIABETES MELLITUS [None]
